FAERS Safety Report 8662008 (Version 2)
Quarter: 2012Q4

REPORT INFORMATION
  Report Type: 
  Country: US (occurrence: US)
  Receive Date: 20120712
  Receipt Date: 20120924
  Transmission Date: 20130627
  Serious: Yes (Hospitalization)
  Sender: FDA-Public Use
  Company Number: US-GLAXOSMITHKLINE-A0983414A

PATIENT
  Age: 74 Year
  Sex: Male

DRUGS (11)
  1. ADVAIR [Suspect]
     Indication: CHRONIC OBSTRUCTIVE PULMONARY DISEASE
     Dosage: 1PUFF Twice per day
     Route: 055
  2. UNKNOWN MEDICATION [Suspect]
     Indication: PRODUCT USED FOR UNKNOWN INDICATION
  3. VENTOLIN [Concomitant]
     Indication: CHRONIC OBSTRUCTIVE PULMONARY DISEASE
     Route: 055
  4. SINGULAIR [Concomitant]
  5. RESTASIS [Concomitant]
  6. PRESERVISION [Concomitant]
  7. LEVOXYL [Concomitant]
  8. MULTIVITAMIN [Concomitant]
  9. VITAMIN C [Concomitant]
  10. VITAMIN D3 [Concomitant]
  11. GLUCOSAMINE + CHONDROITIN [Concomitant]

REACTIONS (5)
  - Pneumonia [Recovered/Resolved]
  - Candidiasis [Recovered/Resolved]
  - Oropharyngeal pain [Not Recovered/Not Resolved]
  - Dysphonia [Not Recovered/Not Resolved]
  - Cough [Not Recovered/Not Resolved]
